FAERS Safety Report 7230615-7 (Version None)
Quarter: 2011Q1

REPORT INFORMATION
  Report Type: 
  Country: None (occurrence: None)
  Receive Date: 20110118
  Receipt Date: 20110113
  Transmission Date: 20110831
  Serious: Yes (Hospitalization, Other)
  Sender: FDA-Public Use
  Company Number: PHHO2010NL18855

PATIENT
  Sex: Female
  Weight: 64.8 kg

DRUGS (3)
  1. STEROIDS NOS [Suspect]
     Indication: RENAL TRANSPLANT
     Dosage: UNKNOWN
  2. MYCOPHENOLATE MOFETIL [Suspect]
     Indication: RENAL TRANSPLANT
     Dosage: UNK
  3. PROGRAF [Suspect]
     Indication: RENAL TRANSPLANT
     Dosage: UNKNOWN

REACTIONS (9)
  - LYMPHOCELE [None]
  - ILEUS [None]
  - HYDRONEPHROSIS [None]
  - CATHETER PLACEMENT [None]
  - URINARY RETENTION [None]
  - CYTOMEGALOVIRUS COLITIS [None]
  - ABSCESS DRAINAGE [None]
  - BLOOD CREATININE INCREASED [None]
  - ABSCESS [None]
